FAERS Safety Report 19738100 (Version 1)
Quarter: 2021Q3

REPORT INFORMATION
  Report Type: Spontaneous
  Country: US (occurrence: US)
  Receive Date: 20210823
  Receipt Date: 20210823
  Transmission Date: 20211014
  Serious: Yes (Hospitalization, Other)
  Sender: FDA-Public Use
  Company Number: US-PURDUE-USA-2021-0282320

PATIENT
  Age: 57 Year
  Sex: Male

DRUGS (3)
  1. PRIMIDONE. [Concomitant]
     Active Substance: PRIMIDONE
     Indication: SEIZURE
     Dosage: 50 MG, Q8H
     Route: 048
  2. BACLOFEN. [Concomitant]
     Active Substance: BACLOFEN
     Indication: MUSCLE SPASTICITY
     Dosage: 10 MG, Q6H (FOR THE PAST SEVERAL YEARS)
     Route: 048
  3. NON?PMN MORPHINE SULFATE [Suspect]
     Active Substance: MORPHINE SULFATE
     Indication: BACK PAIN
     Dosage: 31.975 MG, DAILY
     Route: 037

REACTIONS (3)
  - Substance-induced psychotic disorder [Recovered/Resolved]
  - Drug withdrawal syndrome [Recovered/Resolved]
  - Device delivery system issue [Unknown]
